FAERS Safety Report 10537838 (Version 1)
Quarter: 2014Q4

REPORT INFORMATION
  Report Type: Spontaneous
  Country: ES (occurrence: None)
  Receive Date: 20141021
  Receipt Date: 20141021
  Transmission Date: 20150529
  Serious: Yes (Other)
  Sender: FDA-Public Use
  Company Number: FK201404294

PATIENT
  Age: 4 Year
  Sex: Female

DRUGS (1)
  1. BLEOMYCIN [Suspect]
     Active Substance: BLEOMYCIN SULFATE
     Indication: CRANIOPHARYNGIOMA

REACTIONS (6)
  - Vomiting [None]
  - Pyrexia [None]
  - Wrong technique in drug usage process [None]
  - Neurotoxicity [None]
  - Medication error [None]
  - Headache [None]
